FAERS Safety Report 4526811-X (Version None)
Quarter: 2004Q4

REPORT INFORMATION
  Report Type: 
  Country: None (occurrence: None)
  Receive Date: 20041213
  Receipt Date: 20041129
  Transmission Date: 20050328
  Serious: Yes (Death, Other)
  Sender: FDA-Public Use
  Company Number: 2004102854

PATIENT
  Age: 38 Year
  Sex: Female

DRUGS (16)
  1. GABAPENTIN [Suspect]
     Indication: PAIN
  2. VALDECOXIB (VALDECOXIB) (VALDECOXIB) [Suspect]
     Indication: ILL-DEFINED DISORDER
     Dates: start: 20030825, end: 20031028
  3. ATENOLOL [Suspect]
     Indication: ILL-DEFINED DISORDER
  4. FENTANYL [Suspect]
     Indication: PAIN
     Dosage: 1800 MCG (75 MCG, 24 IN 1 D), TRANSDERMAL
     Route: 062
     Dates: start: 20020820, end: 20040214
  5. VENLAFAXINE (VENLAFAXINE) [Suspect]
     Indication: DEPRESSION
  6. CYCLOBENZAPINE (CYLOBENAZAPRINE) [Suspect]
     Indication: ILL-DEFINED DISORDER
     Dates: end: 20031218
  7. DIAZEPAM [Concomitant]
  8. OXYCODONE HYDROCHLORIDE [Concomitant]
  9. TEMAZEPAM [Concomitant]
  10. MORPHINE SULFATE [Concomitant]
  11. ZOLPIDEM TARTRATE [Concomitant]
  12. VITAMIN B-COMPLEX (VITAMIN B-COMPLEX) [Concomitant]
  13. PSEUDOEPHEDRINE (PSEUDOEPHEDRINE) [Concomitant]
  14. TOPIRAMATE [Concomitant]
  15. BUPROPION (BUPROPION) [Concomitant]
  16. CLONAZEPAM [Concomitant]

REACTIONS (33)
  - ASPIRATION [None]
  - BLOOD PRESSURE IMMEASURABLE [None]
  - BLOOD URINE PRESENT [None]
  - CELL DEATH [None]
  - CHILLS [None]
  - COMA [None]
  - COMPLETED SUICIDE [None]
  - DEVICE FAILURE [None]
  - DIZZINESS [None]
  - DRUG TOXICITY [None]
  - EPISTAXIS [None]
  - GASTRIC PERFORATION [None]
  - HAEMATEMESIS [None]
  - HEADACHE [None]
  - HEPATIC CONGESTION [None]
  - INSOMNIA [None]
  - LIVIDITY [None]
  - MEDICATION ERROR [None]
  - MONOPLEGIA [None]
  - MUSCLE SPASMS [None]
  - OVERDOSE [None]
  - PAIN IN EXTREMITY [None]
  - PERIPHERAL COLDNESS [None]
  - PETECHIAE [None]
  - PHARMACEUTICAL PRODUCT COMPLAINT [None]
  - POSTOPERATIVE INFECTION [None]
  - PRECANCEROUS CELLS PRESENT [None]
  - PULMONARY CONGESTION [None]
  - PULSE ABSENT [None]
  - RASH [None]
  - RESPIRATORY ARREST [None]
  - SMEAR CERVIX ABNORMAL [None]
  - ULNAR NERVE PALSY [None]
